FAERS Safety Report 14583736 (Version 1)
Quarter: 2018Q1

REPORT INFORMATION
  Report Type: Spontaneous
  Country: US (occurrence: US)
  Receive Date: 20180227
  Receipt Date: 20180227
  Transmission Date: 20180509
  Serious: Yes (Other)
  Sender: FDA-Public Use
  Company Number: None

PATIENT
  Age: 31 Year
  Sex: Male
  Weight: 94.5 kg

DRUGS (2)
  1. BD-EZ SCRUB BRUSH CHOLRHEXIDINE [Suspect]
     Active Substance: CHLORHEXIDINE GLUCONATE\CHLOROXYLENOL\POVIDONE-IODINE
     Indication: PREOPERATIVE CARE
     Route: 061
  2. CHLORHEXIDINE GLUCONATE. [Concomitant]
     Active Substance: CHLORHEXIDINE GLUCONATE
     Dates: start: 20080505, end: 20110520

REACTIONS (7)
  - Rash generalised [None]
  - Secretion discharge [None]
  - Skin fissures [None]
  - Rash pruritic [None]
  - Papule [None]
  - Skin ulcer [None]
  - Skin erosion [None]

NARRATIVE: CASE EVENT DATE: 20110520
